FAERS Safety Report 8252018-9 (Version None)
Quarter: 2012Q2

REPORT INFORMATION
  Report Type: 
  Country: None (occurrence: None)
  Receive Date: 20120402
  Receipt Date: 20110323
  Transmission Date: 20120825
  Serious: No
  Sender: FDA-Public Use
  Company Number: US-ABBOTT-11P-163-0804339-00

PATIENT
  Age: 36 Year
  Sex: Male
  Weight: 108.18 kg

DRUGS (1)
  1. TESTOSTERONE [Suspect]
     Indication: ASTHENIA
     Dosage: DAILY DOSE:  UNKNOWN, 20 TO 22 PUMPS, FREQUENCY: TWICE A DAY
     Route: 062
     Dates: start: 20101101, end: 20101201

REACTIONS (6)
  - TESTICULAR SWELLING [None]
  - BLOOD TESTOSTERONE INCREASED [None]
  - EJACULATION DISORDER [None]
  - HYPERTRICHOSIS [None]
  - GYNAECOMASTIA [None]
  - DISTURBANCE IN SEXUAL AROUSAL [None]
